FAERS Safety Report 5132444-7 (Version None)
Quarter: 2006Q4

REPORT INFORMATION
  Report Type: 
  Country: None (occurrence: None)
  Receive Date: 20061023
  Receipt Date: 20061013
  Transmission Date: 20070319
  Serious: Yes (Hospitalization)
  Sender: FDA-Public Use
  Company Number: US-AVENTIS-200620748GDDC

PATIENT
  Age: 58 Year
  Sex: Female
  Weight: 45.9 kg

DRUGS (3)
  1. TAXOTERE [Suspect]
     Indication: TONGUE NEOPLASM MALIGNANT STAGE UNSPECIFIED
     Route: 042
     Dates: start: 20060926, end: 20060926
  2. CISPLATIN [Suspect]
     Indication: TONGUE NEOPLASM MALIGNANT STAGE UNSPECIFIED
     Route: 042
     Dates: start: 20060926, end: 20060926
  3. FLUOROURACIL [Suspect]
     Indication: TONGUE NEOPLASM MALIGNANT STAGE UNSPECIFIED
     Dosage: DOSE: 750 MG/M2 X 5 DAYS
     Route: 042
     Dates: start: 20060926, end: 20061001

REACTIONS (2)
  - FEBRILE NEUTROPENIA [None]
  - HYPOKALAEMIA [None]
